FAERS Safety Report 9261723 (Version 1)
Quarter: 2013Q2

REPORT INFORMATION
  Report Type: Spontaneous
  Country: FR (occurrence: FR)
  Receive Date: 20130429
  Receipt Date: 20130429
  Transmission Date: 20140414
  Serious: Yes (Hospitalization)
  Sender: FDA-Public Use
  Company Number: FR-B.I. PHARMACEUTICALS,INC./RIDGEFIELD-2013-FF-01233FF

PATIENT
  Age: 86 Year
  Sex: Female

DRUGS (4)
  1. PRADAXA [Suspect]
     Indication: ATRIAL FIBRILLATION
     Dosage: 220 MG
     Route: 048
     Dates: end: 201304
  2. PRADAXA [Suspect]
     Dosage: 110 MG
     Route: 048
     Dates: start: 201304
  3. MEDICATIONS NOT FURTHER SPECIFIED [Concomitant]
     Indication: HYPERTENSION
  4. MEDICATIONS NOT FURTHER SPECIFIED [Concomitant]
     Indication: DEPRESSION

REACTIONS (4)
  - Melaena [Unknown]
  - Haemoglobin decreased [Unknown]
  - Cardiac failure [Unknown]
  - Anaemia [Unknown]
